FAERS Safety Report 7273373-2 (Version None)
Quarter: 2011Q1

REPORT INFORMATION
  Report Type: 
  Country: None (occurrence: None)
  Receive Date: 20110203
  Receipt Date: 20101001
  Transmission Date: 20110831
  Serious: No
  Sender: FDA-Public Use
  Company Number: US-ABBOTT-10P-163-0676530-00

PATIENT
  Sex: Female

DRUGS (3)
  1. SYNTHROID [Suspect]
     Indication: PRODUCT USED FOR UNKNOWN INDICATION
     Dates: start: 20100401, end: 20100701
  2. SYNTHROID [Suspect]
     Dosage: ALTERNATES 50 AND 75 MCG
     Dates: start: 20100701
  3. NONI JUICE [Concomitant]
     Indication: PRODUCT USED FOR UNKNOWN INDICATION
     Dates: start: 20100930

REACTIONS (4)
  - PALPITATIONS [None]
  - DRY MOUTH [None]
  - DEPRESSION [None]
  - ASTHENIA [None]
